FAERS Safety Report 25660648 (Version 1)
Quarter: 2025Q3

REPORT INFORMATION
  Report Type: Spontaneous
  Country: RU (occurrence: RU)
  Receive Date: 20250808
  Receipt Date: 20250808
  Transmission Date: 20251021
  Serious: Yes (Hospitalization, Disabling)
  Sender: TORRENT PHARMA INC.
  Company Number: RU-MLMSERVICE-20250723-PI586523-00295-1

PATIENT
  Age: 13 Year
  Sex: Female

DRUGS (8)
  1. SERTRALINE [Suspect]
     Active Substance: SERTRALINE HYDROCHLORIDE
     Indication: Conversion disorder
     Route: 065
  2. ARIPIPRAZOLE [Suspect]
     Active Substance: ARIPIPRAZOLE
     Indication: Mixed anxiety and depressive disorder
     Route: 065
  3. HALOPERIDOL [Suspect]
     Active Substance: HALOPERIDOL
     Indication: Catatonia
     Route: 065
  4. OLANZAPINE [Suspect]
     Active Substance: OLANZAPINE
     Indication: Catatonia
     Route: 065
  5. PERICIAZINE [Suspect]
     Active Substance: PERICIAZINE
     Indication: Catatonia
     Route: 065
  6. QUETIAPINE [Suspect]
     Active Substance: QUETIAPINE
     Indication: Conversion disorder
     Route: 065
  7. BIPERIDEN [Concomitant]
     Active Substance: BIPERIDEN
     Indication: Catatonia
     Route: 048
  8. HOPANTENIC ACID [Concomitant]
     Active Substance: HOPANTENIC ACID
     Indication: Catatonia
     Route: 065

REACTIONS (4)
  - Extrapyramidal disorder [Recovered/Resolved]
  - Hypertonia [Recovered/Resolved]
  - Dystonia [Recovered/Resolved]
  - Tremor [Recovered/Resolved]
